FAERS Safety Report 9403430 (Version 2)
Quarter: 2017Q1

REPORT INFORMATION
  Report Type: Spontaneous
  Country: GB (occurrence: GB)
  Receive Date: 20130716
  Receipt Date: 20170130
  Transmission Date: 20170429
  Serious: Yes (Other)
  Sender: FDA-Public Use
  Company Number: GB-B.I. PHARMACEUTICALS,INC./RIDGEFIELD-2013-UK-01399UK

PATIENT
  Age: 13 Year
  Sex: Male

DRUGS (2)
  1. CATAPRES [Suspect]
     Active Substance: CLONIDINE HYDROCHLORIDE
     Route: 048
  2. CATAPRES [Suspect]
     Active Substance: CLONIDINE HYDROCHLORIDE
     Indication: PRODUCT USED FOR UNKNOWN INDICATION
     Route: 048

REACTIONS (2)
  - Drug withdrawal syndrome [Unknown]
  - Petit mal epilepsy [Unknown]
